FAERS Safety Report 24879506 (Version 1)
Quarter: 2025Q1

REPORT INFORMATION
  Report Type: Spontaneous
  Country: US (occurrence: None)
  Receive Date: 20250123
  Receipt Date: 20250123
  Transmission Date: 20250409
  Serious: Yes (Other)
  Sender: FDA-CTU
  Company Number: None

PATIENT
  Age: 67 Year
  Sex: Male
  Weight: 72 kg

DRUGS (2)
  1. MINOXIDIL [Suspect]
     Active Substance: MINOXIDIL
     Indication: Off label use
     Dosage: 90 TABLETS DAILY ORAL
     Route: 048
     Dates: start: 20250106, end: 20250115
  2. MINOXIDIL [Suspect]
     Active Substance: MINOXIDIL
     Indication: Alopecia

REACTIONS (3)
  - Heart rate increased [None]
  - Chest pain [None]
  - Heart rate variability decreased [None]

NARRATIVE: CASE EVENT DATE: 20250113
